FAERS Safety Report 5772242-4 (Version None)
Quarter: 2008Q2

REPORT INFORMATION
  Report Type: 
  Country: None (occurrence: None)
  Receive Date: 20080613
  Receipt Date: 20080603
  Transmission Date: 20081010
  Serious: Yes (Other)
  Sender: FDA-Public Use
  Company Number: PHHY2008GB10204

PATIENT
  Age: 57 Year
  Sex: Male
  Weight: 92.3 kg

DRUGS (6)
  1. ZOLEDRONIC ACID [Suspect]
     Indication: OSTEITIS DEFORMANS
     Dosage: UNK
     Route: 042
     Dates: start: 20080422
  2. ASPIRIN [Concomitant]
     Indication: CEREBROVASCULAR ACCIDENT
     Dosage: 75MG
     Route: 048
     Dates: start: 20040216
  3. CARDURA [Concomitant]
     Indication: MYOCARDIAL ISCHAEMIA
     Dosage: 8MG
     Route: 048
     Dates: start: 20041123
  4. CO-DYDRAMOL [Concomitant]
     Indication: PAIN
     Dosage: UNK
     Route: 048
     Dates: start: 20050603
  5. RAMIPRIL [Concomitant]
     Indication: MYOCARDIAL ISCHAEMIA
     Dosage: 10MG
     Route: 048
     Dates: start: 20040216
  6. SIMVASTATIN [Concomitant]
     Indication: BLOOD CHOLESTEROL INCREASED
     Dosage: 20MG
     Route: 048

REACTIONS (2)
  - GASTROINTESTINAL HAEMORRHAGE [None]
  - INFLUENZA LIKE ILLNESS [None]
